FAERS Safety Report 25906918 (Version 1)
Quarter: 2025Q4

REPORT INFORMATION
  Report Type: Spontaneous
  Country: US (occurrence: US)
  Receive Date: 20251010
  Receipt Date: 20251010
  Transmission Date: 20260117
  Serious: No
  Sender: SANOFI AVENTIS
  Company Number: US-SA-2025SA296974

PATIENT
  Age: 5 Year
  Sex: Male

DRUGS (2)
  1. ELOCTATE [Suspect]
     Active Substance: EFMOROCTOCOG ALFA
     Indication: Factor VIII deficiency
     Dosage: 1500 IU, PRN
     Route: 042
     Dates: start: 20250516
  2. ELOCTATE [Suspect]
     Active Substance: EFMOROCTOCOG ALFA
     Indication: Factor VIII deficiency
     Dosage: 1500 IU, PRN
     Route: 042
     Dates: start: 20250516

REACTIONS (1)
  - Tinea infection [Unknown]

NARRATIVE: CASE EVENT DATE: 20250927
